FAERS Safety Report 4533628-9 (Version None)
Quarter: 2004Q4

REPORT INFORMATION
  Report Type: 
  Country: None (occurrence: None)
  Receive Date: 20041221
  Receipt Date: 20041217
  Transmission Date: 20050328
  Serious: Yes (Hospitalization)
  Sender: FDA-Public Use
  Company Number: US-BRISTOL-MYERS SQUIBB COMPANY-12798856

PATIENT
  Age: 61 Year
  Sex: Male
  Weight: 61 kg

DRUGS (4)
  1. COUMADIN [Suspect]
     Indication: CEREBROVASCULAR ACCIDENT
     Route: 048
  2. ATENOLOL [Concomitant]
     Indication: BLOOD PRESSURE FLUCTUATION
     Dosage: DAILY DOSE:  ^1 TO 1 1/2 OF THE REGULAR DOSE^
  3. MULTI-VITAMINS [Concomitant]
  4. HYDROCHLOROTHIAZIDE [Concomitant]
     Dosage: DURATION OF THERAPY:  ^FOR A SHORT TIME^

REACTIONS (5)
  - BLUE TOE SYNDROME [None]
  - CORONARY ARTERY SURGERY [None]
  - CYANOSIS [None]
  - DECREASED APPETITE [None]
  - FATIGUE [None]
